FAERS Safety Report 5955377-2 (Version None)
Quarter: 2008Q4

REPORT INFORMATION
  Report Type: 
  Country: None (occurrence: None)
  Receive Date: 20081112
  Receipt Date: 20081027
  Transmission Date: 20090506
  Serious: Yes (Death, Hospitalization)
  Sender: FDA-Public Use
  Company Number: 2008PL000179

PATIENT
  Age: 48 Year
  Sex: Female

DRUGS (3)
  1. AZATHIOPRINE [Suspect]
     Indication: CHOROIDITIS
     Dosage: 150 MG;QD;
  2. INFLIXIMAB [Concomitant]
  3. PREDNISONE TAB [Concomitant]

REACTIONS (4)
  - CHOROIDITIS [None]
  - DISEASE RECURRENCE [None]
  - DISSEMINATED TUBERCULOSIS [None]
  - INTESTINAL PERFORATION [None]
